FAERS Safety Report 5824085-0 (Version None)
Quarter: 2008Q3

REPORT INFORMATION
  Report Type: 
  Country: None (occurrence: None)
  Receive Date: 20080728
  Receipt Date: 20080724
  Transmission Date: 20090109
  Serious: Yes (Death, Other)
  Sender: FDA-Public Use
  Company Number: PHEH2008US06527

PATIENT
  Sex: Female

DRUGS (9)
  1. TEKTURNA [Suspect]
     Indication: HYPERTENSION
     Dosage: 300 MG, QD
     Dates: start: 20070601
  2. LASIX [Concomitant]
  3. POTASSIUM CHLORIDE [Concomitant]
  4. TOPROL-XL [Concomitant]
  5. FOSAMAX [Concomitant]
  6. METFORMIN HCL [Concomitant]
  7. GLIPIZIDE [Concomitant]
  8. NIFEDIPINE [Concomitant]
  9. MONOPRIL [Concomitant]

REACTIONS (3)
  - BLOOD CREATININE INCREASED [None]
  - BLOOD UREA INCREASED [None]
  - DEATH [None]
